FAERS Safety Report 23221886 (Version 1)
Quarter: 2023Q4

REPORT INFORMATION
  Report Type: Spontaneous
  Country: ES (occurrence: ES)
  Receive Date: 20231123
  Receipt Date: 20231123
  Transmission Date: 20240109
  Serious: Yes (Hospitalization)
  Sender: FDA-Public Use
  Company Number: ES-TEVA-2023-ES-2947530

PATIENT
  Age: 21 Year
  Sex: Female

DRUGS (17)
  1. AMISULPRIDE [Suspect]
     Active Substance: AMISULPRIDE
     Indication: Antipsychotic therapy
     Dosage: 600 MILLIGRAM DAILY; ONCE A DAY
     Route: 065
  2. AMISULPRIDE [Suspect]
     Active Substance: AMISULPRIDE
     Indication: Neuropsychological symptoms
     Dosage: 1200 MILLIGRAM DAILY; ONCE A DAY
     Route: 065
  3. LAMOTRIGINE [Suspect]
     Active Substance: LAMOTRIGINE
     Indication: Antipsychotic therapy
     Dosage: 75 MILLIGRAM DAILY; ONCE A DAY
     Route: 065
  4. LAMOTRIGINE [Suspect]
     Active Substance: LAMOTRIGINE
     Indication: Neuropsychological symptoms
  5. BAMOCAFTOR [Suspect]
     Active Substance: BAMOCAFTOR
     Indication: Cystic fibrosis
     Route: 065
  6. LITHIUM [Suspect]
     Active Substance: LITHIUM
     Indication: Antipsychotic therapy
     Dosage: 800 MILLIGRAM DAILY; ONCE A DAY
     Route: 065
  7. LITHIUM [Suspect]
     Active Substance: LITHIUM
     Indication: Neuropsychological symptoms
  8. CLOZAPINE [Suspect]
     Active Substance: CLOZAPINE
     Indication: Antipsychotic therapy
     Dosage: 25 MILLIGRAM DAILY; ONCE A DAY
     Route: 065
  9. CLOZAPINE [Suspect]
     Active Substance: CLOZAPINE
     Indication: Neuropsychological symptoms
  10. VALPROATE [Suspect]
     Active Substance: VALPROIC ACID
     Indication: Antipsychotic therapy
     Dosage: 400 MILLIGRAM DAILY; ONCE A DAY
     Route: 065
  11. VALPROATE [Suspect]
     Active Substance: VALPROIC ACID
     Indication: Neuropsychological symptoms
  12. CLONAZEPAM [Suspect]
     Active Substance: CLONAZEPAM
     Indication: Antipsychotic therapy
     Dosage: 8 MILLIGRAM DAILY; ONCE A DAY
     Route: 065
  13. CLONAZEPAM [Suspect]
     Active Substance: CLONAZEPAM
     Indication: Neuropsychological symptoms
  14. QUETIAPINE [Concomitant]
     Active Substance: QUETIAPINE
     Indication: Antipsychotic therapy
     Dosage: 75 MILLIGRAM DAILY; ONCE A DAY
     Route: 065
  15. QUETIAPINE [Concomitant]
     Active Substance: QUETIAPINE
     Indication: Neuropsychological symptoms
  16. IVACAFTOR [Suspect]
     Active Substance: IVACAFTOR
  17. TEZACAFTOR [Suspect]
     Active Substance: TEZACAFTOR

REACTIONS (6)
  - Neuropsychological symptoms [Recovering/Resolving]
  - Drug intolerance [Unknown]
  - Salivary hypersecretion [Unknown]
  - Discomfort [Unknown]
  - Rash [Unknown]
  - Drug ineffective [Unknown]
